FAERS Safety Report 8608178-0 (Version None)
Quarter: 2012Q3

REPORT INFORMATION
  Report Type: 
  Country: None (occurrence: None)
  Receive Date: 20120821
  Receipt Date: 20120614
  Transmission Date: 20120928
  Serious: No
  Sender: FDA-Public Use
  Company Number: US-TEVA-341106USA

PATIENT
  Sex: Female

DRUGS (3)
  1. FLUCONAZOLE [Suspect]
     Dosage: 400 MILLIGRAM DAILY;
     Route: 048
  2. PROCATEROL HCL [Concomitant]
     Dosage: HFA PRN
  3. CYCLOBENZAPRINE [Concomitant]
     Dosage: PRN

REACTIONS (4)
  - ABDOMINAL DISCOMFORT [None]
  - DIARRHOEA [None]
  - ABDOMINAL PAIN UPPER [None]
  - RASH [None]
